FAERS Safety Report 15898569 (Version 4)
Quarter: 2020Q1

REPORT INFORMATION
  Report Type: Spontaneous
  Country: GB (occurrence: GB)
  Receive Date: 20190201
  Receipt Date: 20200317
  Transmission Date: 20200409
  Serious: Yes (Other)
  Sender: FDA-Public Use
  Company Number: GB-UCBSA-2019002676

PATIENT
  Age: 53 Year
  Sex: Male

DRUGS (9)
  1. KEPPRA [Suspect]
     Active Substance: LEVETIRACETAM
     Dosage: 2000 MG PER DAY
     Route: 048
  2. BRIVIACT [Suspect]
     Active Substance: BRIVARACETAM
     Indication: EPILEPSY
     Dosage: 50 MG, 2X/DAY (BID)
     Route: 048
     Dates: start: 201605
  3. BRIVIACT [Suspect]
     Active Substance: BRIVARACETAM
     Dosage: 50MG OM AND 60MG ON, 2X/DAY (BID)
     Route: 048
  4. ESLICARBAZEPINE [Concomitant]
     Active Substance: ESLICARBAZEPINE
     Indication: EPILEPSY
  5. KEPPRA [Suspect]
     Active Substance: LEVETIRACETAM
     Dosage: 2150 MG DAILY
     Route: 048
  6. BRIVIACT [Suspect]
     Active Substance: BRIVARACETAM
     Dosage: 50 MILLIGRAM, 2X/DAY (BID)
  7. KEPPRA [Suspect]
     Active Substance: LEVETIRACETAM
     Indication: EPILEPSY
     Dosage: 3500MG DAILY; STRENGTH: 500 MG
     Route: 048
     Dates: start: 2002, end: 2010
  8. KEPPRA [Suspect]
     Active Substance: LEVETIRACETAM
     Dosage: 1000MG PER DAY
     Route: 048
     Dates: end: 2016
  9. BRIVIACT [Suspect]
     Active Substance: BRIVARACETAM
     Dosage: 60 MILLIGRAM, 2X/DAY (BID)

REACTIONS (9)
  - Anger [Recovered/Resolved]
  - Brain injury [Unknown]
  - Off label use [Unknown]
  - Discomfort [Unknown]
  - Convulsive threshold lowered [Recovered/Resolved]
  - Somnolence [Unknown]
  - Fatigue [Unknown]
  - Feeling drunk [Not Recovered/Not Resolved]
  - Overdose [Unknown]

NARRATIVE: CASE EVENT DATE: 2002
